FAERS Safety Report 5220986-5 (Version None)
Quarter: 2007Q2

REPORT INFORMATION
  Report Type: 
  Country: None (occurrence: None)
  Receive Date: 20070123
  Receipt Date: 20070108
  Transmission Date: 20071010
  Serious: Yes (Disabling, Other)
  Sender: FDA-Public Use
  Company Number: 2005S1002635

PATIENT
  Age: 10 Year
  Sex: Male

DRUGS (16)
  1. CYSTAGON [Suspect]
     Indication: CYSTINOSIS
     Dosage: SEE IMAGE
     Route: 048
     Dates: start: 20021001
  2. CYSTEAMINE/00492501/ (MERCAPTURINE) [Suspect]
     Indication: CYSTINOSIS
     Dosage: SEE IMAGE
     Route: 048
     Dates: start: 20010301, end: 20020101
  3. CYSTEAMINE/00492501/ (MERCAPTURINE) [Suspect]
     Indication: CYSTINOSIS
     Dosage: SEE IMAGE
     Route: 048
     Dates: start: 20020101, end: 20020601
  4. CYSTEAMINE/00492501/ (MERCAPTURINE) [Suspect]
     Indication: CYSTINOSIS
     Dosage: SEE IMAGE
     Route: 048
     Dates: start: 20020601, end: 20020901
  5. LEVOTHYROXINE SODIUM [Concomitant]
  6. HUMAN GROWTH HORMONE RECOMBINANT [Concomitant]
  7. EPOGEN [Concomitant]
  8. ACE INHIBITOR NOS [Concomitant]
  9. L-CARNITHINE [Concomitant]
  10. CHOLECALCIFEROL [Concomitant]
  11. FOLIC ACID [Concomitant]
  12. PHOSPHATE [Concomitant]
  13. SODIUM CHLORIDE [Concomitant]
  14. SCHOLL SOLUTION [Concomitant]
  15. HYDROCHLOROTHIAZIDE [Concomitant]
  16. CYSTEAMINE /00492501/ [Concomitant]

REACTIONS (38)
  - ABASIA [None]
  - ABNORMAL BEHAVIOUR [None]
  - AGITATION [None]
  - ANAEMIA [None]
  - ARTHRALGIA [None]
  - ASTHENIA [None]
  - ATTENTION DEFICIT/HYPERACTIVITY DISORDER [None]
  - BIOPSY SKIN ABNORMAL [None]
  - BLOOD PARATHYROID HORMONE DECREASED [None]
  - BONE DISORDER [None]
  - BONE PAIN [None]
  - COLLAGEN DISORDER [None]
  - CONFUSIONAL STATE [None]
  - CREATININE RENAL CLEARANCE DECREASED [None]
  - CRYING [None]
  - ECCHYMOSIS [None]
  - EHLERS-DANLOS SYNDROME [None]
  - GLOMERULAR FILTRATION RATE DECREASED [None]
  - GROWTH RETARDATION [None]
  - HAEMANGIOMA OF SKIN [None]
  - HAEMORRHAGE [None]
  - HYPERNATRAEMIA [None]
  - KNEE DEFORMITY [None]
  - MENTAL RETARDATION SEVERITY UNSPECIFIED [None]
  - MUSCULAR WEAKNESS [None]
  - NUCLEAR MAGNETIC RESONANCE IMAGING BRAIN ABNORMAL [None]
  - PAIN IN EXTREMITY [None]
  - PERSONALITY DISORDER [None]
  - PSYCHOMOTOR RETARDATION [None]
  - RICKETS [None]
  - SCAR [None]
  - SCOLIOSIS [None]
  - SENSORIMOTOR DISORDER [None]
  - SKIN LESION [None]
  - SKIN STRIAE [None]
  - SLEEP DISORDER [None]
  - TREMOR [None]
  - VOMITING [None]
